FAERS Safety Report 8711404 (Version 2)
Quarter: 2012Q4

REPORT INFORMATION
  Report Type: 
  Country: US (occurrence: US)
  Receive Date: 20120807
  Receipt Date: 20120904
  Transmission Date: 20130627
  Serious: No
  Sender: FDA-Public Use
  Company Number: US-PFIZER INC-2012188351

PATIENT
  Age: 61 Year
  Sex: Male
  Weight: 103 kg

DRUGS (7)
  1. ATORVASTATIN CALCIUM [Suspect]
     Indication: BLOOD CHOLESTEROL INCREASED
     Dosage: UNK
     Dates: start: 2012, end: 201207
  2. METFORMIN [Concomitant]
     Indication: DIABETES MELLITUS
     Dosage: two tablets of 500 mg two times a day
     Route: 048
  3. LANTUS [Concomitant]
     Indication: DIABETES MELLITUS
     Dosage: UNK,daily
  4. GLIMEPIRIDE [Concomitant]
     Indication: DIABETES MELLITUS
     Dosage: 2 mg, daily
  5. METOPROLOL [Concomitant]
     Indication: HYPERTENSION
     Dosage: 50mg two times a day
  6. LISINOPRIL [Concomitant]
     Indication: HYPERTENSION
     Dosage: 20 mg, 2x/day
  7. ASPIRIN [Concomitant]
     Indication: HYPERTENSION
     Dosage: 81 mg, daily

REACTIONS (3)
  - Myalgia [Recovered/Resolved]
  - Muscle spasms [Recovered/Resolved]
  - Abdominal discomfort [Recovered/Resolved]
